FAERS Safety Report 7987189-2 (Version None)
Quarter: 2011Q4

REPORT INFORMATION
  Report Type: 
  Country: None (occurrence: None)
  Receive Date: 20111216
  Receipt Date: 20111006
  Transmission Date: 20120403
  Serious: Yes (Other)
  Sender: FDA-Public Use
  Company Number: US-BRISTOL-MYERS SQUIBB COMPANY-16143174

PATIENT

DRUGS (1)
  1. ABILIFY [Suspect]
     Indication: ABNORMAL BEHAVIOUR

REACTIONS (1)
  - DYSTONIA [None]
